FAERS Safety Report 10610819 (Version 1)
Quarter: 2014Q4

REPORT INFORMATION
  Report Type: Spontaneous
  Country: SE (occurrence: SE)
  Receive Date: 20141126
  Receipt Date: 20141126
  Transmission Date: 20150529
  Serious: Yes (Other)
  Sender: FDA-Public Use
  Company Number: SE-SA-2014SA159240

PATIENT
  Age: 10 Year
  Sex: Male

DRUGS (1)
  1. CEFOTAXIME [Suspect]
     Active Substance: CEFOTAXIME\CEFOTAXIME SODIUM
     Route: 065

REACTIONS (3)
  - Throat irritation [Unknown]
  - Erythema [Unknown]
  - Pruritus generalised [Unknown]
